FAERS Safety Report 5563191-5 (Version None)
Quarter: 2007Q4

REPORT INFORMATION
  Report Type: 
  Country: None (occurrence: None)
  Receive Date: 20071212
  Receipt Date: 20071212
  Transmission Date: 20080405
  Serious: Yes (Disabling)
  Sender: FDA-Public Use
  Company Number: None

PATIENT
  Sex: Male
  Weight: 95.2554 kg

DRUGS (1)
  1. CLOMIPHENE CITRATE [Suspect]
     Indication: SPERM COUNT DECREASED
     Dosage: 25 MG  DAILY  BUCCAL
     Route: 002
     Dates: start: 20061203, end: 20061206

REACTIONS (1)
  - RETINAL TEAR [None]
